FAERS Safety Report 5215247-4 (Version None)
Quarter: 2007Q1

REPORT INFORMATION
  Report Type: 
  Country: None (occurrence: None)
  Receive Date: 20061121
  Receipt Date: 20061025
  Transmission Date: 20070707
  Serious: Yes (Hospitalization)
  Sender: FDA-Public Use
  Company Number: 1-14339930

PATIENT
  Age: 17 Year
  Sex: Female

DRUGS (1)
  1. SOLODYN [Suspect]
     Indication: ACNE
     Dosage: 1 DAILY
     Dates: start: 20060925, end: 20061016

REACTIONS (1)
  - DRUG HYPERSENSITIVITY [None]
